FAERS Safety Report 9571393 (Version 1)
Quarter: 2013Q3

REPORT INFORMATION
  Report Type: Spontaneous
  Country: US (occurrence: None)
  Receive Date: 20130927
  Receipt Date: 20130927
  Transmission Date: 20140515
  Serious: No
  Sender: FDA-Public Use
  Company Number: None

PATIENT
  Age: 41 Year
  Sex: Female
  Weight: 85.73 kg

DRUGS (2)
  1. PHAZYME [Suspect]
     Indication: ABDOMINAL DISTENSION
     Dosage: 2 PILLS.
     Route: 048
     Dates: start: 20130911, end: 20130911
  2. PHAZYME [Suspect]
     Indication: FLATULENCE
     Dosage: 2 PILLS.
     Route: 048
     Dates: start: 20130911, end: 20130911

REACTIONS (7)
  - Diplopia [None]
  - Feeling abnormal [None]
  - Aphasia [None]
  - Slow response to stimuli [None]
  - Memory impairment [None]
  - Vomiting [None]
  - Product tampering [None]
